FAERS Safety Report 20820610 (Version 2)
Quarter: 2022Q2

REPORT INFORMATION
  Report Type: Report from Study
  Country: US (occurrence: US)
  Receive Date: 20220512
  Receipt Date: 20220613
  Transmission Date: 20220720
  Serious: No
  Sender: FDA-Public Use
  Company Number: US-NOVARTISTESTPH-NVSC2022US108810

PATIENT
  Sex: Male

DRUGS (1)
  1. COSENTYX [Suspect]
     Active Substance: SECUKINUMAB
     Indication: Psoriasis
     Dosage: 300 MG (LOADING DOSES)
     Route: 065
     Dates: start: 20220502

REACTIONS (6)
  - Frequent bowel movements [Unknown]
  - Muscle spasms [Unknown]
  - Abdominal pain upper [Unknown]
  - Irritability [Unknown]
  - Anger [Unknown]
  - Back pain [Unknown]
